FAERS Safety Report 5340059-0 (Version None)
Quarter: 2007Q2

REPORT INFORMATION
  Report Type: 
  Country: None (occurrence: None)
  Receive Date: 20070531
  Receipt Date: 20070521
  Transmission Date: 20071010
  Serious: Yes (Life-Threatening)
  Sender: FDA-Public Use
  Company Number: JP-ASTRAZENECA-2007SE02709

PATIENT
  Age: 24870 Day
  Sex: Female

DRUGS (3)
  1. BLOPRESS TABLETS 4 [Suspect]
     Indication: CARDIAC FAILURE CHRONIC
     Route: 048
     Dates: start: 20070309, end: 20070329
  2. NORVASC [Concomitant]
     Indication: HYPERTENSION
     Route: 048
     Dates: start: 20070309
  3. CLARITIN REDITABS [Concomitant]
     Indication: PRURITUS
     Route: 048
     Dates: start: 20070309

REACTIONS (1)
  - HYPOGLYCAEMIC UNCONSCIOUSNESS [None]
